FAERS Safety Report 17571107 (Version 1)
Quarter: 2020Q1

REPORT INFORMATION
  Report Type: Spontaneous
  Country: US (occurrence: US)
  Receive Date: 20200320
  Receipt Date: 20200320
  Transmission Date: 20200409
  Serious: No
  Sender: FDA-Public Use
  Company Number: None

PATIENT
  Age: 66 Year
  Sex: Male

DRUGS (1)
  1. HEPARIN (HEPARIN NA (BEEF) 5000 UNT/ML INJ) [Suspect]
     Active Substance: HEPARIN SODIUM, BOVINE
     Indication: CARDIAC OPERATION
     Dosage: ?          OTHER STRENGTH:5000UNT/ML INJ;?
     Dates: start: 20180822, end: 20180829

REACTIONS (1)
  - Thrombocytopenia [None]

NARRATIVE: CASE EVENT DATE: 20180904
